FAERS Safety Report 5603396-8 (Version None)
Quarter: 2008Q1

REPORT INFORMATION
  Report Type: 
  Country: None (occurrence: None)
  Receive Date: 20080123
  Receipt Date: 20080108
  Transmission Date: 20080703
  Serious: Yes (Hospitalization)
  Sender: FDA-Public Use
  Company Number: E3810-00843-SPO-FR

PATIENT
  Age: 24 Year
  Sex: Female
  Weight: 90 kg

DRUGS (4)
  1. RABEPRAZOLE SODIUM [Suspect]
     Indication: GASTROOESOPHAGEAL REFLUX DISEASE
     Dosage: 20 MG, 1 IN 1 D, ORAL
     Route: 048
     Dates: start: 20070320, end: 20070416
  2. AMOXICILLIN TRIHYDRATE [Concomitant]
  3. CLARITHROMYCIN [Concomitant]
  4. NIFEDIPINE [Concomitant]

REACTIONS (7)
  - CAESAREAN SECTION [None]
  - DRUG EXPOSURE DURING PREGNANCY [None]
  - FLANK PAIN [None]
  - PREGNANCY [None]
  - PREMATURE BABY [None]
  - RHESUS ANTIBODIES POSITIVE [None]
  - RUBELLA ANTIBODY POSITIVE [None]
